FAERS Safety Report 7771549-9 (Version None)
Quarter: 2011Q3

REPORT INFORMATION
  Report Type: 
  Country: None (occurrence: None)
  Receive Date: 20110922
  Receipt Date: 20110413
  Transmission Date: 20111222
  Serious: Yes (Other)
  Sender: FDA-Public Use
  Company Number: US-ASTRAZENECA-2007UW08399

PATIENT
  Age: 9344 Day
  Sex: Female
  Weight: 97.5 kg

DRUGS (14)
  1. SEROQUEL [Suspect]
     Indication: SCHIZOPHRENIA
     Route: 048
     Dates: start: 20030314, end: 20070101
  2. GEODON [Concomitant]
     Dates: start: 20090101
  3. STELAZINE [Concomitant]
     Dates: start: 20020101, end: 20060101
  4. TRIAVIL [Concomitant]
     Dates: start: 19970101
  5. WELLBUTRIN [Concomitant]
     Dates: start: 20030314
  6. EFFEXOR [Concomitant]
     Dates: start: 20030314
  7. RISPERDAL [Concomitant]
     Indication: SCHIZOPHRENIA
     Dates: start: 20030101
  8. TRILAFON [Concomitant]
     Dates: start: 19970101
  9. DEPAKOTE [Concomitant]
     Dates: start: 20030314
  10. ZOMIG [Concomitant]
     Dates: start: 20030314
  11. ABILIFY [Concomitant]
     Dates: start: 20070101
  12. ZOLOFT [Concomitant]
     Dates: start: 20060911
  13. ZANAFLEX [Concomitant]
     Dates: start: 20030314
  14. SEROQUEL [Suspect]
     Route: 048
     Dates: start: 20060911

REACTIONS (7)
  - BLOOD CHOLESTEROL INCREASED [None]
  - NEUROLEPTIC MALIGNANT SYNDROME [None]
  - TYPE 2 DIABETES MELLITUS [None]
  - HYPERLIPIDAEMIA [None]
  - TYPE 1 DIABETES MELLITUS [None]
  - OBESITY [None]
  - BLOOD TRIGLYCERIDES INCREASED [None]
